FAERS Safety Report 4962229-3 (Version None)
Quarter: 2006Q1

REPORT INFORMATION
  Report Type: 
  Country: None (occurrence: None)
  Receive Date: 20060329
  Receipt Date: 20060322
  Transmission Date: 20060701
  Serious: Yes (Hospitalization, Other)
  Sender: FDA-Public Use
  Company Number: HQWYE469422MAR06

PATIENT
  Age: 75 Year
  Sex: Male

DRUGS (7)
  1. CORDARONE [Suspect]
     Indication: ATRIAL FIBRILLATION
     Dosage: 200 MG 1X PER 1 DAY ORAL
     Route: 048
     Dates: start: 20051201, end: 20060101
  2. WARFARIN SODIUM [Concomitant]
  3. ATORVASTATIN CALCIUM [Concomitant]
  4. RAMIPRIL [Concomitant]
  5. LANSOPRAZOLE [Concomitant]
  6. BISOPROLOL FUMARATE [Concomitant]
  7. ASPIRIN [Concomitant]

REACTIONS (7)
  - ANAEMIA [None]
  - BLOOD CREATININE INCREASED [None]
  - DIZZINESS [None]
  - DYSPNOEA EXACERBATED [None]
  - FAECES DISCOLOURED [None]
  - INTERNATIONAL NORMALISED RATIO INCREASED [None]
  - LETHARGY [None]
